FAERS Safety Report 25046562 (Version 1)
Quarter: 2025Q1

REPORT INFORMATION
  Report Type: Spontaneous
  Country: US (occurrence: None)
  Receive Date: 20250306
  Receipt Date: 20250306
  Transmission Date: 20250408
  Serious: Yes (Other)
  Sender: FDA-CTU
  Company Number: None

PATIENT
  Age: 57 Year
  Sex: Male

DRUGS (1)
  1. DASATINIB [Suspect]
     Active Substance: DASATINIB
     Dosage: 100MG DAILY ORAL?
     Route: 048
     Dates: start: 20230731, end: 20250124

REACTIONS (2)
  - Pancreatic carcinoma metastatic [None]
  - Metastases to liver [None]

NARRATIVE: CASE EVENT DATE: 20250305
